FAERS Safety Report 15834692 (Version 3)
Quarter: 2019Q1

REPORT INFORMATION
  Report Type: Spontaneous
  Country: US (occurrence: US)
  Receive Date: 20190116
  Receipt Date: 20190206
  Transmission Date: 20190417
  Serious: Yes (Other)
  Sender: FDA-Public Use
  Company Number: US-PFIZER INC-2019015371

PATIENT
  Age: 64 Year
  Sex: Male
  Weight: 82 kg

DRUGS (9)
  1. XELJANZ XR [Suspect]
     Active Substance: TOFACITINIB CITRATE
     Indication: RHEUMATOID ARTHRITIS
     Dosage: 11 MG, DAILY
     Route: 048
     Dates: start: 2016
  2. VITAMIN D3 [Concomitant]
     Active Substance: CHOLECALCIFEROL
     Indication: BONE DISORDER
     Dosage: 5000 IU, DAILY
     Route: 048
     Dates: start: 2016
  3. RANEXA [Concomitant]
     Active Substance: RANOLAZINE
     Indication: HYPERTENSION
     Dosage: 500 MG, 2X/DAY
     Route: 048
  4. NITROGLYCERIN. [Concomitant]
     Active Substance: NITROGLYCERIN
     Indication: CARDIAC DISORDER
     Dosage: 0.4 MG, AS NEEDED
     Route: 048
  5. ASPIRIN. [Concomitant]
     Active Substance: ASPIRIN
     Indication: CARDIAC DISORDER
     Dosage: 325 MG, DAILY
     Route: 048
  6. ZINC. [Concomitant]
     Active Substance: ZINC
     Indication: BLOOD DISORDER
     Dosage: 50 MG, DAILY
     Route: 048
  7. TAMADOL [Concomitant]
     Active Substance: TRAMADOL HYDROCHLORIDE
     Indication: PAIN
     Dosage: 50 MG, DAILY
     Route: 048
     Dates: start: 2016
  8. XELJANZ XR [Suspect]
     Active Substance: TOFACITINIB CITRATE
     Dosage: 11 MG, 1X/DAY
     Route: 048
     Dates: start: 20170328
  9. PLAQUENIL [Concomitant]
     Active Substance: HYDROXYCHLOROQUINE SULFATE
     Indication: RHEUMATOID ARTHRITIS
     Dosage: 200 MG, 2X/DAY
     Route: 048
     Dates: start: 2018

REACTIONS (8)
  - Glossodynia [Recovering/Resolving]
  - Tongue disorder [Recovering/Resolving]
  - Swollen tongue [Recovering/Resolving]
  - Lip swelling [Unknown]
  - Sneezing [Not Recovered/Not Resolved]
  - Swelling face [Unknown]
  - Tongue coated [Recovering/Resolving]
  - Oropharyngeal pain [Unknown]

NARRATIVE: CASE EVENT DATE: 2016
